FAERS Safety Report 4963614-6 (Version None)
Quarter: 2006Q1

REPORT INFORMATION
  Report Type: 
  Country: None (occurrence: None)
  Receive Date: 20060201
  Receipt Date: 20051108
  Transmission Date: 20060701
  Serious: No
  Sender: FDA-Public Use
  Company Number: 2005PV004737

PATIENT
  Age: 46 Year
  Sex: Female

DRUGS (4)
  1. BYETTA [Suspect]
     Indication: DIABETES MELLITUS NON-INSULIN-DEPENDENT
     Dosage: 5 MCG, BID, SC
     Route: 058
     Dates: start: 20051104, end: 20051105
  2. AVANDAMET [Concomitant]
  3. HUMULIN N [Concomitant]
  4. CHOLESTEROL MEDICATION [Concomitant]

REACTIONS (5)
  - BLOOD GLUCOSE INCREASED [None]
  - ERYTHEMA MIGRANS [None]
  - FATIGUE [None]
  - INJECTION SITE URTICARIA [None]
  - NAUSEA [None]
